FAERS Safety Report 15999181 (Version 2)
Quarter: 2019Q1

REPORT INFORMATION
  Report Type: Other
  Country: DE (occurrence: DE)
  Receive Date: 20190225
  Receipt Date: 20190327
  Transmission Date: 20190418
  Serious: Yes (Life-Threatening, Other)
  Sender: FDA-Public Use
  Company Number: DE-APOTEX-2019AP008147

PATIENT
  Age: 55 Year
  Sex: Male

DRUGS (7)
  1. PANTOPRAZOLE [Suspect]
     Active Substance: PANTOPRAZOLE
     Dosage: ORAL PROVOCATION TEST: 2 MG, UNK
     Route: 048
     Dates: start: 2015
  2. OMEPRAZOLE. [Suspect]
     Active Substance: OMEPRAZOLE
     Indication: NASOPHARYNGITIS
     Dosage: UNK
     Route: 065
     Dates: start: 201501
  3. PANTOPRAZOLE [Suspect]
     Active Substance: PANTOPRAZOLE
     Dosage: ORAL PROVOCATION TEST: 5 MG, 5 MG, UNK
     Route: 048
     Dates: start: 2015
  4. PANTOPRAZOLE [Suspect]
     Active Substance: PANTOPRAZOLE
     Indication: NASOPHARYNGITIS
     Dosage: UNK
     Route: 048
     Dates: start: 201501
  5. GRIPPOSTAD C [Concomitant]
     Indication: NASOPHARYNGITIS
     Dosage: UNK
     Route: 065
     Dates: start: 201501
  6. PANTOPRAZOLE [Suspect]
     Active Substance: PANTOPRAZOLE
     Dosage: ORAL PROVOCATION TEST: 0.2 MG, 2 MG, UNK
     Route: 048
     Dates: start: 2015
  7. TILIDINE [Concomitant]
     Active Substance: TILIDINE
     Indication: NASOPHARYNGITIS
     Dosage: UNK
     Route: 065
     Dates: start: 201501

REACTIONS (13)
  - Pruritus [Unknown]
  - Dyspnoea [Unknown]
  - Cardiovascular disorder [Recovered/Resolved]
  - Pruritus generalised [Recovered/Resolved]
  - Pruritus generalised [Unknown]
  - Cardiovascular disorder [Unknown]
  - Rash [Recovered/Resolved]
  - Headache [Recovered/Resolved]
  - Nausea [Recovered/Resolved]
  - Type I hypersensitivity [Recovered/Resolved]
  - Skin lesion [Recovered/Resolved]
  - Cold sweat [Recovered/Resolved]
  - Dyspnoea [Recovered/Resolved]

NARRATIVE: CASE EVENT DATE: 201501
